FAERS Safety Report 8762318 (Version 2)
Quarter: 2013Q1

REPORT INFORMATION
  Report Type: Spontaneous
  Country: FI (occurrence: FI)
  Receive Date: 20120828
  Receipt Date: 20130220
  Transmission Date: 20140127
  Serious: Yes (Hospitalization, Other)
  Sender: FDA-Public Use
  Company Number: FI-ELI_LILLY_AND_COMPANY-FI201208006004

PATIENT
  Sex: Female

DRUGS (6)
  1. FORSTEO [Suspect]
     Indication: OSTEOPOROSIS
     Dosage: 20 UG, QD
     Route: 058
     Dates: start: 20110609
  2. TEGRETOL [Concomitant]
     Indication: EPILEPSY
     Dosage: UNK
  3. FRISIUM [Concomitant]
     Indication: EPILEPSY
     Dosage: UNK
  4. EYE DROPS [Concomitant]
     Indication: DRY EYE
     Dosage: UNK
  5. CALCICHEW-D3 FORTE [Concomitant]
     Indication: MEDICAL DIET
     Dosage: UNK
  6. PARAMAX [Concomitant]
     Indication: PAIN
     Dosage: UNK

REACTIONS (5)
  - Cerebral infarction [Recovered/Resolved]
  - Spinal operation [Not Recovered/Not Resolved]
  - Post procedural complication [Not Recovered/Not Resolved]
  - Thrombosis [Not Recovered/Not Resolved]
  - Intervertebral discitis [Recovered/Resolved]
